FAERS Safety Report 13648116 (Version 1)
Quarter: 2017Q2

REPORT INFORMATION
  Report Type: Spontaneous
  Country: CA (occurrence: CA)
  Receive Date: 20170613
  Receipt Date: 20170613
  Transmission Date: 20170830
  Serious: Yes (Other)
  Sender: FDA-Public Use
  Company Number: CA-PFIZER INC-2750603

PATIENT
  Age: 68 Year
  Sex: Female

DRUGS (5)
  1. AVASTIN [Suspect]
     Active Substance: BEVACIZUMAB
     Dosage: NOT REPORTED
     Route: 042
  2. ELOXATIN [Suspect]
     Active Substance: OXALIPLATIN
     Dosage: 85 MG, UNK
     Route: 042
  3. FLUOROURACIL. [Suspect]
     Active Substance: FLUOROURACIL
     Dosage: 2800 MG, UNK
     Route: 042
  4. CALCIUM ACETATE/MAGNESIUM CARBONATE [Suspect]
     Active Substance: CALCIUM ACETATE\MAGNESIUM CARBONATE
     Dosage: NOT REPORTED
     Route: 042
  5. CALCIUM FOLINATE [Suspect]
     Active Substance: LEUCOVORIN CALCIUM
     Dosage: 400 MG/M2, UNK
     Route: 042

REACTIONS (1)
  - Corynebacterium sepsis [Recovered/Resolved]
